FAERS Safety Report 7588818-8 (Version None)
Quarter: 2011Q3

REPORT INFORMATION
  Report Type: 
  Country: None (occurrence: None)
  Receive Date: 20110705
  Receipt Date: 20110624
  Transmission Date: 20111222
  Serious: No
  Sender: FDA-Public Use
  Company Number: FR-JNJFOC-20110605681

PATIENT
  Sex: Male

DRUGS (6)
  1. LOVENOX [Concomitant]
     Route: 065
  2. KETOPROFEN [Concomitant]
     Route: 065
  3. ACETAMINOPHEN [Concomitant]
     Route: 065
  4. DURAGESIC-100 [Suspect]
     Indication: PAIN IN EXTREMITY
     Route: 062
  5. NEXIUM [Concomitant]
     Route: 065
  6. ATARAX [Concomitant]
     Route: 065

REACTIONS (2)
  - INAPPROPRIATE SCHEDULE OF DRUG ADMINISTRATION [None]
  - INTERCEPTED MEDICATION ERROR [None]
